FAERS Safety Report 5475860-6 (Version None)
Quarter: 2007Q3

REPORT INFORMATION
  Report Type: 
  Country: None (occurrence: None)
  Receive Date: 20070927
  Receipt Date: 20070502
  Transmission Date: 20080115
  Serious: Yes (Hospitalization)
  Sender: FDA-Public Use
  Company Number: US-CVT-070087

PATIENT
  Age: 74 Year
  Sex: Male
  Weight: 100.2 kg

DRUGS (15)
  1. RANEXA [Suspect]
     Indication: ANGINA PECTORIS
     Dosage: 500 MG, BID, ORAL
     Route: 048
     Dates: start: 20060501, end: 20061201
  2. RANEXA [Suspect]
     Indication: ANGINA PECTORIS
     Dosage: 500 MG, BID, ORAL
     Route: 048
     Dates: start: 20070201, end: 20070401
  3. COUMADIN [Concomitant]
  4. VYTORIN [Concomitant]
  5. IMDUR [Concomitant]
  6. PLAVIX [Concomitant]
  7. ASPIRIN [Concomitant]
  8. LANOXIN [Concomitant]
  9. SYNTHROID [Concomitant]
  10. INSULIN [Concomitant]
  11. BUMEX [Concomitant]
  12. LISINOPRIL [Concomitant]
  13. OMACOR [Concomitant]
  14. ADVAIR DISKUS 100/50 [Concomitant]
  15. SPIRIVA [Concomitant]

REACTIONS (2)
  - MYOCARDIAL INFARCTION [None]
  - OEDEMA PERIPHERAL [None]
